FAERS Safety Report 10070011 (Version 6)
Quarter: 2016Q3

REPORT INFORMATION
  Report Type: Spontaneous
  Country: US (occurrence: US)
  Receive Date: 20140410
  Receipt Date: 20160906
  Transmission Date: 20161108
  Serious: Yes (Hospitalization, Disabling, Other)
  Sender: FDA-Public Use
  Company Number: US-009507513-1404USA001684

PATIENT
  Sex: Female

DRUGS (9)
  1. CALCIUM (UNSPECIFIED) [Concomitant]
     Active Substance: CALCIUM
     Indication: ROUTINE HEALTH MAINTENANCE
     Dosage: 1200 MG, QD
     Route: 065
     Dates: start: 2004
  2. CORTICOSTEROIDS (UNSPECIFIED) [Concomitant]
     Active Substance: UNSPECIFIED INGREDIENT
     Indication: PRODUCT USED FOR UNKNOWN INDICATION
     Dosage: UNK
     Route: 065
     Dates: start: 20040123
  3. VITAMIN D [Concomitant]
     Active Substance: CHOLECALCIFEROL
     Indication: ROUTINE HEALTH MAINTENANCE
     Dosage: 1000 MG, QD
     Route: 065
     Dates: start: 2004
  4. FOSAMAX [Suspect]
     Active Substance: ALENDRONATE SODIUM
     Dosage: 70 MG, QW
     Route: 048
     Dates: start: 200210, end: 200506
  5. FOSAMAX [Suspect]
     Active Substance: ALENDRONATE SODIUM
     Dosage: 70 MG, QW
     Route: 048
     Dates: start: 20040107, end: 200509
  6. ALENDRONATE SODIUM. [Suspect]
     Active Substance: ALENDRONATE SODIUM
     Indication: OSTEOPOROSIS
     Dosage: 70 MG, QW
     Route: 048
     Dates: start: 201203, end: 201204
  7. FOSAMAX [Suspect]
     Active Substance: ALENDRONATE SODIUM
     Indication: OSTEOPOROSIS
     Dosage: 10 MG, QD
     Route: 048
     Dates: start: 19990719, end: 200201
  8. FOSAMAX PLUS D [Suspect]
     Active Substance: ALENDRONATE SODIUM\CHOLECALCIFEROL
     Indication: OSTEOPOROSIS
     Dosage: 70 MG, QW
     Route: 048
     Dates: start: 200609, end: 201202
  9. FOSAMAX [Suspect]
     Active Substance: ALENDRONATE SODIUM
     Dosage: 70 MG, QW
     Route: 048
     Dates: start: 200602, end: 200608

REACTIONS (28)
  - Hypokalaemia [Unknown]
  - Sleep apnoea syndrome [Unknown]
  - Ligament sprain [Unknown]
  - Gastrooesophageal reflux disease [Unknown]
  - Dental prosthesis placement [Unknown]
  - Neuropathy peripheral [Unknown]
  - Hypothyroidism [Unknown]
  - Ankle fracture [Recovered/Resolved]
  - Ulna fracture [Unknown]
  - Raynaud^s phenomenon [Unknown]
  - Limb injury [Not Recovered/Not Resolved]
  - Muscle strain [Unknown]
  - Vomiting [Unknown]
  - Type 2 diabetes mellitus [Unknown]
  - Dengue fever [Unknown]
  - Staphylococcal infection [Recovered/Resolved]
  - Fungal infection [Unknown]
  - Gastrointestinal disorder [Unknown]
  - Lupus nephritis [Unknown]
  - Pneumonia [Unknown]
  - Femur fracture [Unknown]
  - Osteoporosis [Unknown]
  - Anaemia of chronic disease [Unknown]
  - Hypertension [Unknown]
  - Sepsis [Recovered/Resolved]
  - Haemorrhagic anaemia [Unknown]
  - Scleroderma [Unknown]
  - Contusion [Unknown]

NARRATIVE: CASE EVENT DATE: 2005
